FAERS Safety Report 12081881 (Version 2)
Quarter: 2016Q2

REPORT INFORMATION
  Report Type: Report from Study
  Country: US (occurrence: US)
  Receive Date: 20160216
  Receipt Date: 20160412
  Transmission Date: 20160815
  Serious: Yes (Other)
  Sender: FDA-Public Use
  Company Number: US-BIOGEN-2016BI00190098

PATIENT
  Sex: Female

DRUGS (1)
  1. TECFIDERA [Suspect]
     Active Substance: DIMETHYL FUMARATE
     Indication: MULTIPLE SCLEROSIS
     Route: 048
     Dates: start: 20151220, end: 20160313

REACTIONS (12)
  - Seizure [Recovered/Resolved]
  - Head injury [Unknown]
  - Oral herpes [Unknown]
  - Dry skin [Recovered/Resolved]
  - Fall [Recovered/Resolved]
  - Acne [Unknown]
  - Dark circles under eyes [Recovered/Resolved]
  - Abdominal pain [Unknown]
  - Constipation [Unknown]
  - Periorbital oedema [Recovered/Resolved]
  - Mood altered [Recovered/Resolved]
  - Pain of skin [Recovered/Resolved]
